FAERS Safety Report 7898602-3 (Version None)
Quarter: 2011Q4

REPORT INFORMATION
  Report Type: 
  Country: None (occurrence: None)
  Receive Date: 20111107
  Receipt Date: 20111107
  Transmission Date: 20120403
  Serious: Yes (Hospitalization)
  Sender: FDA-Public Use
  Company Number: None

PATIENT
  Age: 66 Year
  Sex: Male
  Weight: 76.2 kg

DRUGS (1)
  1. DABIGATRAN [Suspect]
     Indication: ATRIAL FIBRILLATION
     Dosage: 150 MG
     Route: 048

REACTIONS (6)
  - FALL [None]
  - HEADACHE [None]
  - PERSONALITY CHANGE [None]
  - HEAD INJURY [None]
  - SUBDURAL HAEMATOMA [None]
  - CONFUSIONAL STATE [None]
